FAERS Safety Report 17598588 (Version 1)
Quarter: 2020Q3

REPORT INFORMATION
  Report Type: Spontaneous
  Country: US (occurrence: US)
  Receive Date: 20200329
  Receipt Date: 20200329
  Transmission Date: 20201105
  Serious: Yes (Other)
  Sender: FDA-Public Use
  Company Number: None

PATIENT
  Age: 52 Year
  Sex: Male
  Weight: 89.55 kg

DRUGS (1)
  1. ERAVACYCLINE. [Suspect]
     Active Substance: ERAVACYCLINE
     Indication: INFECTION
     Dates: start: 20191201, end: 20200301

REACTIONS (7)
  - Protein total decreased [None]
  - Mycobacterium test positive [None]
  - Blood albumin decreased [None]
  - Calcium ionised decreased [None]
  - Nausea [None]
  - Infection [None]
  - Limb injury [None]

NARRATIVE: CASE EVENT DATE: 20191220
